FAERS Safety Report 7932505-0 (Version None)
Quarter: 2011Q4

REPORT INFORMATION
  Report Type: 
  Country: None (occurrence: None)
  Receive Date: 20111122
  Receipt Date: 20111118
  Transmission Date: 20120403
  Serious: No
  Sender: FDA-Public Use
  Company Number: US-BIOGENIDEC-2011BI041223

PATIENT
  Age: 29 Year
  Sex: Female

DRUGS (1)
  1. TYSABRI [Suspect]
     Indication: MULTIPLE SCLEROSIS
     Route: 042
     Dates: start: 20111017

REACTIONS (5)
  - MYALGIA [None]
  - FATIGUE [None]
  - RESTLESS LEGS SYNDROME [None]
  - MUSCULAR WEAKNESS [None]
  - PAIN IN EXTREMITY [None]
